FAERS Safety Report 8107873-X (Version None)
Quarter: 2012Q1

REPORT INFORMATION
  Report Type: 
  Country: None (occurrence: None)
  Receive Date: 20120202
  Receipt Date: 20120125
  Transmission Date: 20120608
  Serious: Yes (Hospitalization, Other)
  Sender: FDA-Public Use
  Company Number: US-ROCHE-788438

PATIENT
  Sex: Female
  Weight: 44.038 kg

DRUGS (4)
  1. ACCUTANE [Suspect]
     Dates: start: 19970101, end: 19980101
  2. ACCUTANE [Suspect]
  3. ACCUTANE [Suspect]
     Dates: start: 19940101, end: 19950101
  4. ACCUTANE [Suspect]
     Indication: ACNE
     Dates: start: 19880101, end: 19890101

REACTIONS (11)
  - DEPRESSION [None]
  - SUICIDAL IDEATION [None]
  - ENTEROCOLONIC FISTULA [None]
  - INFLAMMATORY BOWEL DISEASE [None]
  - COLON NEOPLASM [None]
  - EMOTIONAL DISTRESS [None]
  - SUICIDE ATTEMPT [None]
  - DIVERTICULITIS [None]
  - INTESTINAL OBSTRUCTION [None]
  - MENTAL DISORDER [None]
  - CROHN'S DISEASE [None]
